FAERS Safety Report 24179130 (Version 1)
Quarter: 2024Q3

REPORT INFORMATION
  Report Type: Spontaneous
  Country: FR (occurrence: FR)
  Receive Date: 20240806
  Receipt Date: 20240806
  Transmission Date: 20241016
  Serious: Yes (Life-Threatening, Other)
  Sender: BRISTOL MYERS SQUIBB
  Company Number: None

PATIENT
  Age: 68 Year
  Sex: Female

DRUGS (4)
  1. OPDIVO [Suspect]
     Active Substance: NIVOLUMAB
     Indication: Malignant melanoma
     Dosage: C1 (3 MG/KG/3 WEEKS)
     Route: 042
     Dates: start: 20240616, end: 20240616
  2. OPDIVO [Suspect]
     Active Substance: NIVOLUMAB
     Dosage: C2
     Route: 042
     Dates: start: 20240709, end: 20240709
  3. YERVOY [Suspect]
     Active Substance: IPILIMUMAB
     Indication: Malignant melanoma
     Dosage: C1 (1 MG/KG/3 WEEKS)
     Route: 042
     Dates: start: 20240619, end: 20240619
  4. YERVOY [Suspect]
     Active Substance: IPILIMUMAB
     Dosage: C2
     Route: 042
     Dates: start: 20240709, end: 20240709

REACTIONS (2)
  - Colitis [Not Recovered/Not Resolved]
  - General physical health deterioration [Not Recovered/Not Resolved]

NARRATIVE: CASE EVENT DATE: 20240714
